FAERS Safety Report 23063246 (Version 3)
Quarter: 2023Q4

REPORT INFORMATION
  Report Type: Spontaneous
  Country: GB (occurrence: GB)
  Receive Date: 20231013
  Receipt Date: 20231220
  Transmission Date: 20240109
  Serious: Yes (Other)
  Sender: FDA-Public Use
  Company Number: GB-ABBVIE-4234078

PATIENT
  Age: 68 Year
  Sex: Male

DRUGS (22)
  1. ADALIMUMAB [Suspect]
     Active Substance: ADALIMUMAB\ISOPROPYL ALCOHOL
     Indication: Rheumatoid arthritis
     Dosage: COMMENCED ON ADALIMUMAB BEFORE 2009
     Route: 065
  2. ADALIMUMAB [Suspect]
     Active Substance: ADALIMUMAB\ISOPROPYL ALCOHOL
     Dosage: UNK (COMMENCED ON ADALIMUMAB BEFORE 2009) DOSAGE1: UNIT=PREFILLED SYRINGE
     Route: 050
  3. REMICADE [Suspect]
     Active Substance: INFLIXIMAB
     Indication: Product used for unknown indication
     Dosage: UNK
     Route: 041
  4. REMICADE [Suspect]
     Active Substance: INFLIXIMAB
     Dosage: UNK
     Route: 042
  5. REMICADE [Suspect]
     Active Substance: INFLIXIMAB
     Dosage: UNK
     Route: 042
  6. REMICADE [Suspect]
     Active Substance: INFLIXIMAB
     Dosage: UNK
     Route: 065
  7. ABATACEPT [Concomitant]
     Active Substance: ABATACEPT
     Indication: Product used for unknown indication
     Dosage: UNK
     Route: 050
     Dates: start: 2009, end: 2015
  8. CERTOLIZUMAB [Concomitant]
     Active Substance: CERTOLIZUMAB
     Indication: Product used for unknown indication
     Dosage: UNK
     Route: 050
     Dates: start: 2016
  9. ETANERCEPT [Concomitant]
     Active Substance: ETANERCEPT
     Indication: Product used for unknown indication
     Dosage: UNK
     Route: 065
  10. ETANERCEPT [Concomitant]
     Active Substance: ETANERCEPT
     Dosage: UNK; ;
     Route: 050
  11. ETANERCEPT [Concomitant]
     Active Substance: ETANERCEPT
     Dosage: UNK; ;
     Route: 050
  12. ETANERCEPT [Concomitant]
     Active Substance: ETANERCEPT
     Route: 050
  13. GOLIMUMAB [Concomitant]
     Active Substance: GOLIMUMAB
     Dosage: UNK
     Route: 050
     Dates: start: 2016
  14. GOLIMUMAB [Concomitant]
     Active Substance: GOLIMUMAB
     Indication: Product used for unknown indication
     Dosage: UNK; ;
     Route: 050
     Dates: start: 2016
  15. HYRIMOZ [Concomitant]
     Active Substance: ADALIMUMAB-ADAZ
     Dosage: PRE-FILLED SYRINGE+X100I
     Route: 065
  16. HYRIMOZ [Concomitant]
     Active Substance: ADALIMUMAB-ADAZ
     Dosage: UNK (PRE-FILLED SYRINGE+X100I)
     Route: 050
  17. HYRIMOZ [Concomitant]
     Active Substance: ADALIMUMAB-ADAZ
     Indication: Product used for unknown indication
     Dosage: UNK (PRE-FILLED SYRINGE+X100I); ;
     Route: 050
  18. RITUXIMAB [Concomitant]
     Active Substance: RITUXIMAB
     Indication: Product used for unknown indication
     Dosage: UNK
     Route: 050
     Dates: start: 2009, end: 2015
  19. SARILUMAB [Concomitant]
     Active Substance: SARILUMAB
     Indication: Product used for unknown indication
     Dosage: UNK
     Route: 050
     Dates: start: 2016
  20. TOCILIZUMAB [Concomitant]
     Active Substance: TOCILIZUMAB
     Dosage: UNK
     Route: 050
     Dates: start: 2016
  21. TOCILIZUMAB [Concomitant]
     Active Substance: TOCILIZUMAB
     Indication: Product used for unknown indication
     Dosage: UNK; ;
     Route: 050
     Dates: start: 2016
  22. TOFACITINIB [Concomitant]
     Active Substance: TOFACITINIB
     Indication: Product used for unknown indication
     Dosage: UNK
     Route: 050
     Dates: start: 2016

REACTIONS (2)
  - Rheumatoid arthritis [Unknown]
  - Therapeutic product effect incomplete [Unknown]
